FAERS Safety Report 22838797 (Version 2)
Quarter: 2024Q1

REPORT INFORMATION
  Report Type: Spontaneous
  Country: RU (occurrence: RU)
  Receive Date: 20230818
  Receipt Date: 20240201
  Transmission Date: 20240409
  Serious: Yes (Other)
  Sender: FDA-Public Use
  Company Number: RU-SUN PHARMACEUTICAL INDUSTRIES LTD-2023R1-403792

PATIENT
  Sex: Female

DRUGS (5)
  1. IMATINIB [Suspect]
     Active Substance: IMATINIB
     Indication: Chronic myeloid leukaemia
     Dosage: 600 MILLIGRAM, DAILY
     Route: 065
     Dates: start: 201812
  2. IMATINIB [Suspect]
     Active Substance: IMATINIB
     Dosage: DOSE REDUCTION (150-300 MG/DAY)
     Route: 065
     Dates: end: 201903
  3. BOSUTINIB [Suspect]
     Active Substance: BOSUTINIB
     Indication: Chronic myeloid leukaemia
     Dosage: 500 MILLIGRAM, DAILY
     Route: 065
     Dates: start: 201909, end: 201912
  4. DASATINIB [Suspect]
     Active Substance: DASATINIB
     Indication: Chronic myeloid leukaemia
     Dosage: 100 MILLIGRAM, DAILY
     Route: 065
     Dates: start: 201904, end: 201907
  5. NILOTINIB [Suspect]
     Active Substance: NILOTINIB
     Indication: Chronic myeloid leukaemia
     Dosage: 800 MILLIGRAM, DAILY
     Route: 065
     Dates: start: 201907, end: 201908

REACTIONS (7)
  - Neutropenia [Unknown]
  - Anaemia [Unknown]
  - Drug ineffective [Unknown]
  - Vomiting [Unknown]
  - Amylase increased [Unknown]
  - Nausea [Unknown]
  - Drug resistance [Unknown]
